FAERS Safety Report 4929154-5 (Version None)
Quarter: 2006Q1

REPORT INFORMATION
  Report Type: 
  Country: None (occurrence: None)
  Receive Date: 20060228
  Receipt Date: 20060228
  Transmission Date: 20060701
  Serious: Yes (Hospitalization)
  Sender: FDA-Public Use
  Company Number: None

PATIENT
  Age: 73 Year
  Sex: 0
  Weight: 83.0083 kg

DRUGS (1)
  1. TECHNETIUM TC-99M PENTETATE KIT [Suspect]
     Indication: CORONARY ARTERY DISEASE
     Dosage: 31.9 M CI ONCE IV
     Route: 042
     Dates: start: 20051116

REACTIONS (6)
  - EMPYEMA [None]
  - MEDICAL DEVICE COMPLICATION [None]
  - OEDEMA PERIPHERAL [None]
  - PHARMACEUTICAL PRODUCT COMPLAINT [None]
  - PNEUMONIA [None]
  - PURULENCE [None]
